FAERS Safety Report 24031107 (Version 1)
Quarter: 2024Q2

REPORT INFORMATION
  Report Type: Spontaneous
  Country: US (occurrence: US)
  Receive Date: 20240628
  Receipt Date: 20240628
  Transmission Date: 20240716
  Serious: Yes (Life-Threatening, Hospitalization)
  Sender: FDA-Public Use
  Company Number: US-Air Products and Chemicals-2158682

PATIENT
  Age: 74 Year
  Sex: Male

DRUGS (1)
  1. OXYGEN [Suspect]
     Active Substance: OXYGEN

REACTIONS (3)
  - Acute pulmonary oedema [Recovering/Resolving]
  - Hypoxia [Recovering/Resolving]
  - Respiratory acidosis [Recovering/Resolving]
